FAERS Safety Report 16963432 (Version 1)
Quarter: 2019Q4

REPORT INFORMATION
  Report Type: Spontaneous
  Country: US (occurrence: US)
  Receive Date: 20191025
  Receipt Date: 20191025
  Transmission Date: 20200122
  Serious: Yes (Other)
  Sender: FDA-Public Use
  Company Number: US-BAUSCH-BL-2019-058668

PATIENT
  Age: 68 Year
  Sex: Male

DRUGS (3)
  1. KETOROLAC [Suspect]
     Active Substance: KETOROLAC TROMETHAMINE
     Indication: POSTOPERATIVE CARE
     Dosage: UP TO 8 TIMES DAILY
     Route: 047
  2. PREDNISOLONE ACETATE. [Suspect]
     Active Substance: PREDNISOLONE ACETATE
     Indication: POSTOPERATIVE CARE
     Dosage: UP TO 8 TIMES DAILY
     Route: 047
  3. BESIFLOXACIN [Suspect]
     Active Substance: BESIFLOXACIN
     Indication: POSTOPERATIVE CARE
     Dosage: UP TO 8 TIMES DAILY
     Route: 047

REACTIONS (3)
  - Overdose [Unknown]
  - Corneal deposits [Unknown]
  - Product deposit [Unknown]
